FAERS Safety Report 18097677 (Version 1)
Quarter: 2020Q3

REPORT INFORMATION
  Report Type: Spontaneous
  Country: SA (occurrence: SA)
  Receive Date: 20200731
  Receipt Date: 20200731
  Transmission Date: 20201103
  Serious: Yes (Death)
  Sender: FDA-Public Use
  Company Number: SA-PFIZER INC-2020289702

PATIENT
  Age: 31 Year
  Sex: Male

DRUGS (6)
  1. ETOPOSIDE. [Concomitant]
     Active Substance: ETOPOSIDE
     Indication: TESTICULAR GERM CELL TUMOUR MIXED
     Dosage: UNK, CYCLIC ,(5?DAY REGIMEN)
  2. CISPLATIN. [Concomitant]
     Active Substance: CISPLATIN
     Indication: TESTICULAR GERM CELL TUMOUR MIXED
     Dosage: UNK, CYCLIC ,(5?DAY REGIMEN)
  3. PIPERACILLIN/TAZOBACTAM [Suspect]
     Active Substance: PIPERACILLIN SODIUM\TAZOBACTAM SODIUM
     Indication: PSEUDOMONAS INFECTION
     Dosage: UNK
  4. CISPLATIN. [Concomitant]
     Active Substance: CISPLATIN
     Indication: CHORIOCARCINOMA
  5. VANCOMYCIN HCL [Suspect]
     Active Substance: VANCOMYCIN HYDROCHLORIDE
     Indication: PSEUDOMONAS INFECTION
     Dosage: UNK
  6. ETOPOSIDE. [Concomitant]
     Active Substance: ETOPOSIDE
     Indication: CHORIOCARCINOMA

REACTIONS (1)
  - Drug ineffective [Fatal]
